FAERS Safety Report 9682963 (Version 1)
Quarter: 2013Q4

REPORT INFORMATION
  Report Type: Spontaneous
  Country: US (occurrence: US)
  Receive Date: 20131112
  Receipt Date: 20131112
  Transmission Date: 20140711
  Serious: No
  Sender: FDA-Public Use
  Company Number: US-009507513-1311USA002920

PATIENT
  Age: 35 Year
  Sex: Female
  Weight: 70.75 kg

DRUGS (1)
  1. NUVARING [Suspect]
     Indication: CONTRACEPTION
     Dosage: ONE RING 3 WEEKS IN AND ONE WEEK OF RING FREE PERIOD
     Route: 067
     Dates: start: 20131027

REACTIONS (4)
  - Local swelling [Unknown]
  - Joint swelling [Unknown]
  - Mood swings [Unknown]
  - Metrorrhagia [Unknown]
